FAERS Safety Report 12743143 (Version 1)
Quarter: 2016Q3

REPORT INFORMATION
  Report Type: Report from Study
  Country: US (occurrence: US)
  Receive Date: 20160914
  Receipt Date: 20160914
  Transmission Date: 20161109
  Serious: Yes (Other)
  Sender: FDA-Public Use
  Company Number: US-ABBVIE-16K-163-1720352-00

PATIENT
  Age: 53 Year
  Sex: Male

DRUGS (1)
  1. DUODOPA [Suspect]
     Active Substance: CARBIDOPA\LEVODOPA
     Indication: PARKINSON^S DISEASE
     Route: 050
     Dates: start: 201602

REACTIONS (7)
  - Dyskinesia [Recovered/Resolved]
  - Hernia [Recovering/Resolving]
  - Hernia pain [Recovering/Resolving]
  - Seizure [Recovered/Resolved]
  - Fall [Unknown]
  - Tendon rupture [Recovering/Resolving]
  - Fall [Recovering/Resolving]

NARRATIVE: CASE EVENT DATE: 2016
